FAERS Safety Report 5138554-2 (Version None)
Quarter: 2006Q4

REPORT INFORMATION
  Report Type: 
  Country: None (occurrence: None)
  Receive Date: 20061030
  Receipt Date: 20060306
  Transmission Date: 20070319
  Serious: No
  Sender: FDA-Public Use
  Company Number: US-GLAXOSMITHKLINE-A0597406A

PATIENT
  Sex: Female

DRUGS (3)
  1. ADVAIR DISKUS 100/50 [Suspect]
     Indication: ASTHMA
     Route: 055
     Dates: start: 20040831, end: 20041122
  2. ALLEGRA [Concomitant]
     Route: 048
  3. SINGULAIR [Concomitant]
     Route: 048

REACTIONS (1)
  - CANDIDIASIS [None]
